FAERS Safety Report 6607177-8 (Version None)
Quarter: 2010Q1

REPORT INFORMATION
  Report Type: 
  Country: None (occurrence: None)
  Receive Date: 20100212
  Receipt Date: 20100104
  Transmission Date: 20100710
  Serious: No
  Sender: FDA-Public Use
  Company Number: 1000010083

PATIENT
  Age: 61 Year
  Sex: Female

DRUGS (19)
  1. SAVELLA [Suspect]
     Indication: FIBROMYALGIA
     Dosage: 12.5 MG (12.5 MG, 1 IN 1 D), ORAL : 25 MG (12.5 MG, 2 IN 1 D), ORAL : 50 MG (25 MG, 2 IN 1 D), ORAL
     Route: 048
     Dates: start: 20090610, end: 20090610
  2. SAVELLA [Suspect]
     Indication: FIBROMYALGIA
     Dosage: 12.5 MG (12.5 MG, 1 IN 1 D), ORAL : 25 MG (12.5 MG, 2 IN 1 D), ORAL : 50 MG (25 MG, 2 IN 1 D), ORAL
     Route: 048
     Dates: start: 20090611, end: 20090612
  3. SAVELLA [Suspect]
     Indication: FIBROMYALGIA
     Dosage: 12.5 MG (12.5 MG, 1 IN 1 D), ORAL : 25 MG (12.5 MG, 2 IN 1 D), ORAL : 50 MG (25 MG, 2 IN 1 D), ORAL
     Route: 048
     Dates: start: 20090613, end: 20090616
  4. SAVELLA [Suspect]
     Indication: FIBROMYALGIA
     Dosage: 100 MG (50 MG, 2 IN 1 D), ORAL
     Route: 048
     Dates: start: 20090617, end: 20091006
  5. LEVOTHYROXINE [Concomitant]
  6. OMEPRAZOLE [Concomitant]
  7. FUROSEMIDE [Concomitant]
  8. CYMBALTA [Concomitant]
  9. POTASSIUM [Concomitant]
  10. ABILIFY [Concomitant]
  11. LORAZEPAM [Concomitant]
  12. TRAZODONE HCL [Concomitant]
  13. LYRICA [Concomitant]
  14. METHADONE [Concomitant]
  15. OXYCODONE HCL [Concomitant]
  16. AMBIEN [Concomitant]
  17. ATENOLOL [Concomitant]
  18. PREMARIN [Concomitant]
  19. MULTI-VITAMINS [Concomitant]

REACTIONS (1)
  - PLATELET COUNT DECREASED [None]
